FAERS Safety Report 9858491 (Version 1)
Quarter: 2014Q1

REPORT INFORMATION
  Report Type: Spontaneous
  Country: US (occurrence: None)
  Receive Date: 20140130
  Receipt Date: 20140130
  Transmission Date: 20141002
  Serious: Yes (Hospitalization)
  Sender: FDA-Public Use
  Company Number: None

PATIENT
  Age: 34 Year
  Sex: Female
  Weight: 102.51 kg

DRUGS (5)
  1. NICOTROL INHALER [Suspect]
     Indication: SMOKING CESSATION THERAPY
     Dosage: CARTRIDGE (4-12/DAY)
     Dates: start: 20131118, end: 20131230
  2. PRENATAL VITAMIN [Concomitant]
  3. METHADONE [Concomitant]
  4. ZOLOFT [Concomitant]
  5. XANAX [Concomitant]

REACTIONS (2)
  - Drug abuse [None]
  - Drug effect decreased [None]
